FAERS Safety Report 9529290 (Version 1)
Quarter: 2013Q1

REPORT INFORMATION
  Report Type: Spontaneous
  Country: US (occurrence: None)
  Receive Date: 20130320
  Receipt Date: 20130320
  Transmission Date: 20140127
  Serious: Yes (Death, Other)
  Sender: FDA-Public Use
  Company Number: 075082

PATIENT
  Age: 43 Year
  Sex: Male

DRUGS (6)
  1. ALPRAZOLAM [Suspect]
     Dosage: INGST+DERM
  2. FENTANYL [Suspect]
     Route: 062
  3. PHENOBARBITAL [Suspect]
     Dosage: INGST+ DERM
  4. LAMOTRIGINE [Suspect]
     Dosage: INGST + DERM
  5. CYCLOBENZAPRINE [Suspect]
     Dosage: INGST + DERM
  6. DEXTROMETHORPHAN [Suspect]
     Dosage: INGST + DERM

REACTIONS (2)
  - Cardio-respiratory arrest [None]
  - Drug abuse [None]
